FAERS Safety Report 15919060 (Version 2)
Quarter: 2019Q2

REPORT INFORMATION
  Report Type: Spontaneous
  Country: CH (occurrence: CH)
  Receive Date: 20190205
  Receipt Date: 20190410
  Transmission Date: 20190711
  Serious: Yes (Death, Hospitalization)
  Sender: FDA-Public Use
  Company Number: CH-JNJFOC-20190203569

PATIENT
  Age: 77 Year
  Sex: Male
  Weight: 75 kg

DRUGS (8)
  1. XARELTO [Suspect]
     Active Substance: RIVAROXABAN
     Indication: THROMBOSIS PROPHYLAXIS
     Route: 048
     Dates: start: 201710, end: 20190101
  2. DAFALGAN [Suspect]
     Active Substance: ACETAMINOPHEN
     Indication: PRODUCT USED FOR UNKNOWN INDICATION
     Dosage: 1G MAXIMUM 4 TABLETS DAILY (USUALLY 2-3 TABLETS TAKEN), AT LEAST SINCE OCT-2017;
     Route: 048
     Dates: start: 201710, end: 20190101
  3. MAGNESIUM ASPARTATE [Concomitant]
     Active Substance: MAGNESIUM ASPARTATE
     Route: 048
     Dates: end: 20190101
  4. STILNOX [Suspect]
     Active Substance: ZOLPIDEM TARTRATE
     Indication: PRODUCT USED FOR UNKNOWN INDICATION
     Route: 048
     Dates: start: 201802
  5. AMLODIPINE [Suspect]
     Active Substance: AMLODIPINE BESYLATE
     Indication: HYPERTENSION
     Dosage: 5MG 1-0-0 AT LEAST SINCE OCT-2017 (INTAKE ALREADY DESCRIBED IN 20
     Route: 048
     Dates: start: 201710, end: 20190101
  6. TAGRISSO [Suspect]
     Active Substance: OSIMERTINIB
     Indication: LUNG ADENOCARCINOMA STAGE IV
     Route: 048
     Dates: start: 201802, end: 20181231
  7. IRBESARTAN. [Suspect]
     Active Substance: IRBESARTAN
     Indication: HYPERTENSION
     Dosage: 1-0-0 AT LEAST SINCE OCT-2017 (INTAKE ALREADY DESCRIBED IN 2012), STOP
     Route: 048
     Dates: start: 201710, end: 20190101
  8. MORPHINE [Concomitant]
     Active Substance: MORPHINE
     Indication: DYSPNOEA AT REST
     Route: 048
     Dates: start: 20181129

REACTIONS (3)
  - Hepatocellular injury [Fatal]
  - Dose calculation error [Fatal]
  - Jaundice cholestatic [Fatal]

NARRATIVE: CASE EVENT DATE: 201710
